FAERS Safety Report 13242190 (Version 1)
Quarter: 2017Q1

REPORT INFORMATION
  Report Type: Spontaneous
  Country: US (occurrence: US)
  Receive Date: 20170216
  Receipt Date: 20170216
  Transmission Date: 20170428
  Serious: No
  Sender: FDA-Public Use
  Company Number: US-RELYPSA-RLY2017000103

PATIENT
  Sex: Male

DRUGS (23)
  1. VELTASSA [Suspect]
     Active Substance: PATIROMER
     Indication: HYPERKALAEMIA
     Dosage: 8.4 G, QD
     Route: 048
     Dates: start: 20160513
  2. ASMANEX [Concomitant]
     Active Substance: MOMETASONE FUROATE
  3. ASPIRIN                            /00002701/ [Concomitant]
     Active Substance: ASPIRIN
  4. DICYCLOMINE HCL [Concomitant]
     Active Substance: DICYCLOMINE HYDROCHLORIDE
  5. MILK OF MAGNESIA [Concomitant]
     Active Substance: MAGNESIUM HYDROXIDE
  6. SENSIPAR [Concomitant]
     Active Substance: CINACALCET HYDROCHLORIDE
  7. CEPHALEXIN                         /00145501/ [Concomitant]
     Active Substance: CEPHALEXIN
  8. CLOPIDOGREL BISULFATE. [Concomitant]
     Active Substance: CLOPIDOGREL BISULFATE
  9. OMEGA 3                            /01333901/ [Concomitant]
     Active Substance: FISH OIL\TOCOPHEROL
  10. RENVELA [Concomitant]
     Active Substance: SEVELAMER CARBONATE
  11. SEREVENT DISKUS [Concomitant]
     Active Substance: SALMETEROL XINAFOATE
  12. ATORVASTATIN CALCIUM. [Concomitant]
     Active Substance: ATORVASTATIN CALCIUM
  13. NEXIUM [Concomitant]
     Active Substance: ESOMEPRAZOLE MAGNESIUM
  14. NITROSTAT [Concomitant]
     Active Substance: NITROGLYCERIN
  15. GLUCAGON EMERGENCY KIT [Concomitant]
     Active Substance: GLUCAGON
  16. HUMULIN R [Concomitant]
     Active Substance: INSULIN HUMAN
  17. PROAIR HFA [Concomitant]
     Active Substance: ALBUTEROL SULFATE
  18. TRAMADOL HCL [Concomitant]
     Active Substance: TRAMADOL HYDROCHLORIDE
  19. AMARYL [Concomitant]
     Active Substance: GLIMEPIRIDE
  20. LANTUS [Concomitant]
     Active Substance: INSULIN GLARGINE
  21. BUMETANIDE. [Concomitant]
     Active Substance: BUMETANIDE
  22. METAMUCIL [Concomitant]
     Active Substance: PLANTAGO SEED
  23. CARVEDILOL. [Concomitant]
     Active Substance: CARVEDILOL

REACTIONS (1)
  - Drug dose omission [Unknown]
